FAERS Safety Report 4267834-8 (Version None)
Quarter: 2004Q1

REPORT INFORMATION
  Report Type: 
  Country: None (occurrence: None)
  Receive Date: 20040109
  Receipt Date: 20031208
  Transmission Date: 20041129
  Serious: Yes (Other)
  Sender: FDA-Public Use
  Company Number: JP-GLAXOSMITHKLINE-B0317335A

PATIENT
  Age: 53 Year
  Sex: Male
  Weight: 65 kg

DRUGS (10)
  1. VALACYCLOVIR HCL [Suspect]
     Indication: HERPES ZOSTER
     Route: 048
     Dates: start: 20031204, end: 20031205
  2. LOSARTAN POTASSIUM [Concomitant]
     Indication: HYPERTENSION
     Dosage: 25MG PER DAY
     Route: 048
     Dates: start: 20030201
  3. FOLIC ACID [Concomitant]
     Indication: FOLATE DEFICIENCY
     Dosage: 5MG PER DAY
     Route: 048
     Dates: start: 20031011
  4. SENNOSIDE [Concomitant]
     Indication: CONSTIPATION
     Dosage: 24MG PER DAY
     Route: 048
     Dates: start: 20020307
  5. BROTIZOLAM [Concomitant]
     Indication: INSOMNIA
     Dosage: .25MG PER DAY
     Route: 048
     Dates: start: 20020307
  6. PRECIPITATED CALCIUM CARBONATE [Concomitant]
     Indication: HYPERPHOSPHATAEMIA
     Dosage: 6G PER DAY
     Route: 048
  7. MAXACALCITOL [Concomitant]
     Indication: HYPERPARATHYROIDISM SECONDARY
     Dosage: 5MCG PER DAY
     Route: 042
     Dates: start: 20021207
  8. EPOETIN BETA [Concomitant]
     Indication: NEPHROGENIC ANAEMIA
     Dosage: 750IU PER DAY
     Route: 042
  9. VIT B COMPLEX [Concomitant]
     Route: 042
     Dates: start: 20020501
  10. HEMODIALYSIS [Concomitant]
     Dates: start: 20031204, end: 20031206

REACTIONS (4)
  - ANXIETY [None]
  - DIZZINESS [None]
  - HALLUCINATION, AUDITORY [None]
  - HALLUCINATION, VISUAL [None]
